FAERS Safety Report 9010880 (Version 1)
Quarter: 2013Q1

REPORT INFORMATION
  Report Type: Spontaneous
  Country: US (occurrence: US)
  Receive Date: 20130109
  Receipt Date: 20130109
  Transmission Date: 20140127
  Serious: Yes (Hospitalization, Other)
  Sender: FDA-Public Use
  Company Number: US-BAYER-2013-001528

PATIENT
  Age: 28 Year
  Sex: Female
  Weight: 170 kg

DRUGS (13)
  1. YASMIN [Suspect]
     Indication: MENORRHAGIA
  2. OCELLA [Suspect]
  3. RANITIDINE [Concomitant]
     Dosage: 150 MG, BID
     Route: 048
  4. AUGMENTIN [Concomitant]
     Dosage: 875 MG, BID
     Route: 048
  5. SYNTHROID [Concomitant]
     Dosage: 0.1 MG, DAILY
     Route: 048
  6. HYDROCHLOROTHIAZIDE [Concomitant]
     Dosage: 12.5 MG, DAILY
     Route: 048
  7. METFORMIN [Concomitant]
     Dosage: 1000 MG, DAILY
     Route: 048
  8. AMOXICILLIN W/POTASSIUM CLAVULANATE [Concomitant]
  9. IRON SULFATE [Concomitant]
  10. DANAZOL [Concomitant]
  11. DUONEB [Concomitant]
  12. TYLENOL [Concomitant]
     Indication: PAIN
  13. SOLU-MEDROL [Concomitant]
     Indication: BRONCHITIS

REACTIONS (2)
  - Pulmonary embolism [None]
  - Deep vein thrombosis [None]
